FAERS Safety Report 25244183 (Version 2)
Quarter: 2025Q4

REPORT INFORMATION
  Report Type: Spontaneous
  Country: US (occurrence: US)
  Receive Date: 20250428
  Receipt Date: 20251205
  Transmission Date: 20260118
  Serious: Yes (Life-Threatening, Hospitalization)
  Sender: TEVA
  Company Number: US-TEVA-VS-3324490

PATIENT
  Age: 25 Year
  Sex: Male

DRUGS (3)
  1. PALIPERIDONE [Suspect]
     Active Substance: PALIPERIDONE
     Indication: Schizophrenia
     Route: 065
  2. EMPAGLIFLOZIN [Suspect]
     Active Substance: EMPAGLIFLOZIN
     Indication: Diabetes mellitus
     Route: 065
  3. METFORMIN [Concomitant]
     Active Substance: METFORMIN HYDROCHLORIDE
     Indication: Diabetes mellitus
     Route: 065

REACTIONS (5)
  - Pancreatitis acute [Recovered/Resolved]
  - Tachypnoea [Unknown]
  - Euglycaemic diabetic ketoacidosis [Recovered/Resolved]
  - Somnolence [Unknown]
  - Hypertriglyceridaemia [Recovered/Resolved]
